FAERS Safety Report 6353696-1 (Version None)
Quarter: 2009Q3

REPORT INFORMATION
  Report Type: 
  Country: None (occurrence: None)
  Receive Date: 20090912
  Receipt Date: 20090622
  Transmission Date: 20100115
  Serious: No
  Sender: FDA-Public Use
  Company Number: US-ABBOTT-08P-163-0468928-00

PATIENT
  Sex: Female
  Weight: 77.18 kg

DRUGS (5)
  1. HUMIRA [Suspect]
     Indication: RHEUMATOID ARTHRITIS
     Route: 050
     Dates: start: 20071101
  2. METHOTREXATE [Concomitant]
     Indication: RHEUMATOID ARTHRITIS
     Dosage: 2.5 MG-4 TABS PER WEEK
     Route: 048
     Dates: start: 20070101
  3. LEVOTHYROXINE SODIUM [Concomitant]
     Indication: HYPOTHYROIDISM
     Dosage: 112 MCG DAILY
     Route: 048
  4. ESTROGENS CONJUGATED [Concomitant]
     Indication: HORMONE THERAPY
     Dosage: 0.3 MG DAILY
     Route: 048
     Dates: start: 20060101
  5. PROGESTERONE [Concomitant]
     Indication: HORMONE THERAPY
     Dosage: 100 MG DAILY
     Route: 048
     Dates: start: 20060101

REACTIONS (2)
  - INCORRECT DOSE ADMINISTERED [None]
  - INJECTION SITE IRRITATION [None]
